FAERS Safety Report 9436859 (Version 1)
Quarter: 2013Q3

REPORT INFORMATION
  Report Type: Spontaneous
  Country: US (occurrence: US)
  Receive Date: 20130802
  Receipt Date: 20130802
  Transmission Date: 20140515
  Serious: No
  Sender: FDA-Public Use
  Company Number: US-PFIZER INC-2013221761

PATIENT
  Sex: Female

DRUGS (1)
  1. PREMARIN [Suspect]
     Indication: OVARIAN FAILURE
     Dosage: UNK

REACTIONS (3)
  - Alopecia [Unknown]
  - Bladder irritation [Unknown]
  - Skin discolouration [Unknown]
